FAERS Safety Report 12214986 (Version 1)
Quarter: 2016Q1

REPORT INFORMATION
  Report Type: Spontaneous
  Country: US (occurrence: US)
  Receive Date: 20160328
  Receipt Date: 20160328
  Transmission Date: 20160526
  Serious: No
  Sender: FDA-Public Use
  Company Number: US-WARNER CHILCOTT, LLC-1049816

PATIENT
  Age: 83 Year
  Sex: Female

DRUGS (4)
  1. ATENOLOL. [Concomitant]
     Active Substance: ATENOLOL
  2. ESTRACE [Suspect]
     Active Substance: ESTRADIOL
     Route: 065
  3. LOSARTAN. [Concomitant]
     Active Substance: LOSARTAN
  4. ESTRACE [Suspect]
     Active Substance: ESTRADIOL
     Indication: ORGASM ABNORMAL
     Route: 067
     Dates: start: 201503, end: 20151202

REACTIONS (3)
  - Product use issue [None]
  - Orgasm abnormal [Not Recovered/Not Resolved]
  - Malaise [Recovered/Resolved]

NARRATIVE: CASE EVENT DATE: 201503
